FAERS Safety Report 5517577-5 (Version None)
Quarter: 2007Q4

REPORT INFORMATION
  Report Type: 
  Country: None (occurrence: None)
  Receive Date: 20071114
  Receipt Date: 20071105
  Transmission Date: 20080405
  Serious: Yes (Disabling)
  Sender: FDA-Public Use
  Company Number: JP-SANOFI-SYNTHELABO-A01200712707

PATIENT
  Age: 68 Year
  Sex: Male

DRUGS (4)
  1. CALCIUM LEVOFOLINATE [Concomitant]
     Route: 041
     Dates: start: 20070522, end: 20070522
  2. FLUOROURACIL [Concomitant]
     Route: 040
     Dates: start: 20070522, end: 20070522
  3. FLUOROURACIL [Concomitant]
     Route: 041
     Dates: start: 20070522, end: 20070523
  4. OXALIPLATIN [Suspect]
     Indication: RECTAL CANCER
     Route: 041
     Dates: start: 20070522, end: 20070522

REACTIONS (1)
  - GUILLAIN-BARRE SYNDROME [None]
